FAERS Safety Report 8237250-2 (Version None)
Quarter: 2012Q1

REPORT INFORMATION
  Report Type: 
  Country: None (occurrence: None)
  Receive Date: 20120327
  Receipt Date: 20120327
  Transmission Date: 20120608
  Serious: No
  Sender: FDA-Public Use
  Company Number: None

PATIENT
  Sex: Female

DRUGS (2)
  1. DEXAMETHASONE/REVLIMID [Concomitant]
     Dosage: NOT PROVIDED
  2. VELCADE [Suspect]
     Indication: MULTIPLE MYELOMA
     Dosage: NOT PROVIDED

REACTIONS (3)
  - DRY MOUTH [None]
  - MUSCLE TWITCHING [None]
  - NEUROPATHY PERIPHERAL [None]
